FAERS Safety Report 6346891-9 (Version None)
Quarter: 2009Q3

REPORT INFORMATION
  Report Type: 
  Country: None (occurrence: None)
  Receive Date: 20090909
  Receipt Date: 20090909
  Transmission Date: 20100115
  Serious: Yes (Other)
  Sender: FDA-Public Use
  Company Number: None

PATIENT
  Age: 8 Year
  Sex: Male

DRUGS (1)
  1. SERTRALINE HCL [Suspect]
     Indication: ANXIETY
     Dosage: 50MG 1 1/2 AM PO
     Route: 048
     Dates: start: 20080901, end: 20081001

REACTIONS (5)
  - AGGRESSION [None]
  - EDUCATIONAL PROBLEM [None]
  - GENERAL PHYSICAL HEALTH DETERIORATION [None]
  - PRODUCT SUBSTITUTION ISSUE [None]
  - SOCIAL PROBLEM [None]
